FAERS Safety Report 8185034-6 (Version None)
Quarter: 2012Q1

REPORT INFORMATION
  Report Type: 
  Country: None (occurrence: None)
  Receive Date: 20120305
  Receipt Date: 20120227
  Transmission Date: 20120608
  Serious: Yes (Death, Other)
  Sender: FDA-Public Use
  Company Number: US-TEVA-325045USA

PATIENT
  Age: 41 Year
  Sex: Male

DRUGS (8)
  1. LAMIVUDINE [Concomitant]
     Indication: HIV INFECTION
     Route: 065
  2. DIDANOSINE [Concomitant]
     Indication: HIV INFECTION
     Route: 065
  3. DOXORUBICIN HCL [Suspect]
     Indication: BURKITT'S LYMPHOMA
     Route: 065
  4. LOPINAVIR/RITONAVIR [Concomitant]
     Indication: HIV INFECTION
     Route: 065
  5. ETOPOSIDE [Suspect]
     Indication: BURKITT'S LYMPHOMA
     Route: 065
  6. EFAVIRENZ [Suspect]
     Indication: HIV INFECTION
     Route: 065
  7. COTRIM [Concomitant]
     Indication: PNEUMOCYSTIS JIROVECI PNEUMONIA
     Route: 065
  8. EMTRICITABINE AND TENOFOVIR DISOPROXIL FUMARATE [Concomitant]
     Indication: HIV INFECTION
     Route: 065

REACTIONS (11)
  - HAEMORRHAGE [None]
  - ADENOVIRAL HEPATITIS [None]
  - RESPIRATORY FAILURE [None]
  - DIARRHOEA [None]
  - PYREXIA [None]
  - WHITE BLOOD CELL COUNT DECREASED [None]
  - PSYCHIATRIC SYMPTOM [None]
  - HYPOTENSION [None]
  - RENAL FAILURE [None]
  - COAGULOPATHY [None]
  - ACUTE HEPATIC FAILURE [None]
